FAERS Safety Report 8423429-3 (Version None)
Quarter: 2012Q2

REPORT INFORMATION
  Report Type: 
  Country: None (occurrence: None)
  Receive Date: 20120608
  Receipt Date: 20120604
  Transmission Date: 20120825
  Serious: Yes (Other)
  Sender: FDA-Public Use
  Company Number: US-ASTRAZENECA-2012SE37288

PATIENT
  Age: 40 Year
  Sex: Female
  Weight: 59 kg

DRUGS (13)
  1. LAMICTAL [Suspect]
     Indication: CONVULSION
     Route: 065
     Dates: start: 20020101
  2. LORATADINE [Concomitant]
     Indication: HYPERSENSITIVITY
     Dosage: DAILY
  3. TIGAN [Concomitant]
     Indication: NAUSEA
  4. ASPIRIN [Concomitant]
     Indication: ANTICOAGULANT THERAPY
  5. FIORICET [Concomitant]
     Indication: CLUSTER HEADACHE
  6. ZOMIG [Concomitant]
     Indication: CLUSTER HEADACHE
  7. SEROQUEL [Suspect]
     Route: 048
  8. NEXIUM [Concomitant]
     Indication: ABDOMINAL PAIN
     Route: 048
  9. NICORETTE [Suspect]
     Route: 048
  10. ATIVAN [Concomitant]
     Indication: ANXIETY
  11. EFFEXOR XR [Suspect]
     Route: 048
  12. LESCOL [Concomitant]
     Indication: BLOOD CHOLESTEROL ABNORMAL
  13. ZOMIG-ZMT [Concomitant]
     Indication: CLUSTER HEADACHE

REACTIONS (4)
  - LIMB CRUSHING INJURY [None]
  - GAIT DISTURBANCE [None]
  - ACCIDENT [None]
  - PAIN IN EXTREMITY [None]
